FAERS Safety Report 9308938 (Version 2)
Quarter: 2013Q2

REPORT INFORMATION
  Report Type: Report from Study
  Country: US (occurrence: US)
  Receive Date: 20130524
  Receipt Date: 20130603
  Transmission Date: 20140414
  Serious: Yes (Other)
  Sender: FDA-Public Use
  Company Number: US-ABBOTT-13P-163-1092170-00

PATIENT
  Sex: Female

DRUGS (3)
  1. HUMIRA [Suspect]
     Indication: CROHN^S DISEASE
     Dates: end: 201303
  2. HUMIRA [Suspect]
     Dates: start: 20130513
  3. UNKNOWN MEDICATIONS [Concomitant]
     Indication: PRODUCT USED FOR UNKNOWN INDICATION

REACTIONS (4)
  - Meniscus injury [Unknown]
  - Oropharyngeal pain [Recovering/Resolving]
  - Sinusitis [Recovering/Resolving]
  - Postoperative abscess [Recovering/Resolving]
